FAERS Safety Report 12867764 (Version 1)
Quarter: 2016Q4

REPORT INFORMATION
  Report Type: Spontaneous
  Country: IT (occurrence: IT)
  Receive Date: 20161020
  Receipt Date: 20161020
  Transmission Date: 20170207
  Serious: Yes (Other)
  Sender: FDA-Public Use
  Company Number: IT-GILEAD-2016-0238232

PATIENT
  Age: 51 Year
  Sex: Female

DRUGS (5)
  1. MICARDISPLUS [Concomitant]
     Active Substance: HYDROCHLOROTHIAZIDE\TELMISARTAN
     Dosage: UNK
     Route: 048
     Dates: start: 20100701
  2. RITONAVIR. [Concomitant]
     Active Substance: RITONAVIR
     Indication: HIV INFECTION
     Dosage: 100 MG, UNK
     Route: 048
     Dates: start: 20061123, end: 20160610
  3. TELZIR [Concomitant]
     Active Substance: FOSAMPRENAVIR CALCIUM
     Indication: HIV INFECTION
     Dosage: 1400 MG, UNK
     Route: 048
     Dates: start: 20061123, end: 20160610
  4. MERCILON [Concomitant]
     Active Substance: DESOGESTREL\ETHINYL ESTRADIOL
     Dosage: UNK
     Route: 048
     Dates: start: 20080612, end: 20150225
  5. TRUVADA [Suspect]
     Active Substance: EMTRICITABINE\TENOFOVIR DISOPROXIL FUMARATE
     Indication: HIV INFECTION
     Dosage: UNK
     Route: 048
     Dates: start: 20061123, end: 20150225

REACTIONS (1)
  - Osteoporosis [Recovering/Resolving]

NARRATIVE: CASE EVENT DATE: 20150225
